FAERS Safety Report 9056038 (Version 5)
Quarter: 2013Q2

REPORT INFORMATION
  Report Type: Spontaneous
  Country: BR (occurrence: BR)
  Receive Date: 20130205
  Receipt Date: 20130416
  Transmission Date: 20140414
  Serious: Yes (Life-Threatening, Hospitalization, Other)
  Sender: FDA-Public Use
  Company Number: PHHY2013BR009744

PATIENT
  Age: 81 Year
  Sex: Female
  Weight: 70 kg

DRUGS (10)
  1. SANDOSTATIN LAR [Suspect]
     Indication: ACROMEGALY
     Dosage: 40 MG (2 AMPOULES OF 20 MG)
     Route: 030
     Dates: start: 20040801
  2. SANDOSTATIN LAR [Suspect]
     Dosage: 20MG, EVERY 30 DAYS
     Route: 030
  3. HYDROCHLOROTHIAZIDE [Concomitant]
     Indication: HYPERTENSION
     Dosage: UNK UKN, UNK
  4. CAPTOPRIL [Concomitant]
     Indication: HYPERTENSION
     Dosage: UNK UKN, UNK
  5. LEVOTHYROXINE SODIUM [Concomitant]
     Dosage: 1 DF, IN ALTERNATE DAYS
     Route: 048
  6. SIMVASTATIN [Concomitant]
     Indication: PITUITARY TUMOUR
     Dosage: 1 DF, QD
     Route: 048
  7. GARDENAL//PHENOBARBITAL [Concomitant]
     Indication: PITUITARY TUMOUR
     Dosage: 1 DF, QD
     Route: 048
     Dates: end: 20121227
  8. CABERGOLINE [Concomitant]
     Indication: PITUITARY TUMOUR
     Dosage: 1 DF, IN ALTERNATE DAYS
     Route: 048
     Dates: end: 20121227
  9. SOMAVERT [Concomitant]
     Indication: PITUITARY TUMOUR
     Dosage: UNK, 1 APPLICATION
     Route: 058
     Dates: end: 20130314
  10. PURAN T4 [Concomitant]
     Indication: PITUITARY TUMOUR
     Dosage: 1 DF QD
     Route: 048

REACTIONS (11)
  - Coma [Recovering/Resolving]
  - Malignant neoplasm progression [Not Recovered/Not Resolved]
  - Terminal state [Unknown]
  - Cerebrovascular accident [Not Recovered/Not Resolved]
  - Anxiety [Recovering/Resolving]
  - General physical condition abnormal [Recovering/Resolving]
  - Feeling abnormal [Recovering/Resolving]
  - Urinary tract infection [Recovering/Resolving]
  - Head injury [Recovering/Resolving]
  - Memory impairment [Not Recovered/Not Resolved]
  - Fluid retention [Not Recovered/Not Resolved]
